FAERS Safety Report 25155346 (Version 2)
Quarter: 2025Q2

REPORT INFORMATION
  Report Type: Spontaneous
  Country: PT (occurrence: PT)
  Receive Date: 20250403
  Receipt Date: 20250422
  Transmission Date: 20250717
  Serious: Yes (Other)
  Sender: PFIZER
  Company Number: PT-PFIZER INC-202500069843

PATIENT
  Age: 53 Year
  Sex: Male

DRUGS (1)
  1. METHOTREXATE SODIUM [Suspect]
     Active Substance: METHOTREXATE SODIUM
     Indication: Systemic lupus erythematosus
     Route: 058
     Dates: start: 201909, end: 201909

REACTIONS (7)
  - Eye pruritus [Recovered/Resolved]
  - Pruritus [Recovered/Resolved]
  - Rash [Recovered/Resolved]
  - Wheezing [Recovered/Resolved]
  - Oral pruritus [Recovered/Resolved]
  - Off label use [Unknown]
  - Off label use [Unknown]
